FAERS Safety Report 9526005 (Version 2)
Quarter: 2013Q3

REPORT INFORMATION
  Report Type: Spontaneous
  Country: JP (occurrence: JP)
  Receive Date: 20130916
  Receipt Date: 20130916
  Transmission Date: 20140515
  Serious: Yes (Other)
  Sender: FDA-Public Use
  Company Number: JP-SANOFI-AVENTIS-2013SA088283

PATIENT
  Age: 63 Year
  Sex: Male

DRUGS (2)
  1. RASURITEK [Suspect]
     Indication: TUMOUR LYSIS SYNDROME
     Route: 042
     Dates: start: 201302
  2. RASURITEK [Suspect]
     Indication: TUMOUR LYSIS SYNDROME
     Route: 042
     Dates: start: 20130829

REACTIONS (2)
  - Ureteric obstruction [Unknown]
  - Urinary retention [Unknown]
